FAERS Safety Report 24695016 (Version 1)
Quarter: 2024Q4

REPORT INFORMATION
  Report Type: Spontaneous
  Country: US (occurrence: None)
  Receive Date: 20241203
  Receipt Date: 20241203
  Transmission Date: 20250115
  Serious: Yes (Death)
  Sender: Public
  Company Number: None

PATIENT
  Age: 84 Year
  Sex: Female

DRUGS (1)
  1. LENALIDOMIDE [Suspect]
     Active Substance: LENALIDOMIDE
     Indication: Plasma cell myeloma
     Dosage: 10MG QD ORAL
     Route: 048
     Dates: start: 20240806, end: 20241106

REACTIONS (4)
  - Sepsis [None]
  - Lactic acidosis [None]
  - Leukopenia [None]
  - Abdominal pain [None]

NARRATIVE: CASE EVENT DATE: 20241106
